FAERS Safety Report 4990985-7 (Version None)
Quarter: 2006Q2

REPORT INFORMATION
  Report Type: 
  Country: None (occurrence: None)
  Receive Date: 20060503
  Receipt Date: 20051006
  Transmission Date: 20061013
  Serious: Yes (Hospitalization, Disabling)
  Sender: FDA-Public Use
  Company Number: US-MERCK-0510USA05517

PATIENT
  Age: 36 Year
  Sex: Male
  Weight: 86 kg

DRUGS (4)
  1. VIOXX [Suspect]
     Indication: PAIN
     Route: 048
     Dates: start: 20000801, end: 20020101
  2. VIOXX [Suspect]
     Route: 048
     Dates: start: 20000801, end: 20020101
  3. AVAPRO [Concomitant]
     Route: 048
  4. PREVACID [Concomitant]
     Route: 065

REACTIONS (31)
  - ABDOMINAL HAEMATOMA [None]
  - ARRHYTHMIA [None]
  - BLOOD CREATINE PHOSPHOKINASE MB INCREASED [None]
  - CAROTID ARTERY STENOSIS [None]
  - CEREBRAL ARTERY STENOSIS [None]
  - CEREBROVASCULAR ACCIDENT [None]
  - CHEST PAIN [None]
  - ESSENTIAL HYPERTENSION [None]
  - FLANK PAIN [None]
  - GASTROOESOPHAGEAL REFLUX DISEASE [None]
  - HAEMATOMA [None]
  - HAEMATURIA [None]
  - HYPERCHOLESTEROLAEMIA [None]
  - HYPERCOAGULATION [None]
  - HYPERTENSION [None]
  - HYPOAESTHESIA [None]
  - ISCHAEMIC STROKE [None]
  - MIGRAINE [None]
  - MITRAL VALVE INCOMPETENCE [None]
  - NEPHROLITHIASIS [None]
  - NERVOUS SYSTEM DISORDER [None]
  - NEUROPATHY PERIPHERAL [None]
  - PAIN IN EXTREMITY [None]
  - PALPITATIONS [None]
  - PARAESTHESIA [None]
  - RESTLESS LEGS SYNDROME [None]
  - SCAN MYOCARDIAL PERFUSION ABNORMAL [None]
  - SLEEP APNOEA SYNDROME [None]
  - TRANSIENT ISCHAEMIC ATTACK [None]
  - VENTRICULAR EXTRASYSTOLES [None]
  - VERTEBROBASILAR INSUFFICIENCY [None]
